FAERS Safety Report 10012791 (Version 3)
Quarter: 2014Q2

REPORT INFORMATION
  Report Type: Spontaneous
  Country: US (occurrence: US)
  Receive Date: 20140314
  Receipt Date: 20140408
  Transmission Date: 20141212
  Serious: Yes (Other)
  Sender: FDA-Public Use
  Company Number: US-ASTRAZENECA-2001UW08661

PATIENT
  Age: 63 Year
  Sex: Female
  Weight: 49.9 kg

DRUGS (3)
  1. TENORMIN [Suspect]
     Indication: CARDIAC FLUTTER
     Route: 048
     Dates: start: 1999
  2. NEXIUM [Suspect]
     Indication: OESOPHAGEAL SPASM
     Route: 048
     Dates: start: 2008
  3. DARVOCET [Concomitant]
     Indication: FIBROMYALGIA
     Dosage: PRN
     Route: 048

REACTIONS (5)
  - Transient ischaemic attack [Unknown]
  - Diarrhoea [Not Recovered/Not Resolved]
  - Alopecia [Not Recovered/Not Resolved]
  - Reading disorder [Unknown]
  - Off label use [Unknown]
